FAERS Safety Report 23572284 (Version 1)
Quarter: 2024Q1

REPORT INFORMATION
  Report Type: Spontaneous
  Country: US (occurrence: US)
  Receive Date: 20240227
  Receipt Date: 20240227
  Transmission Date: 20240410
  Serious: No
  Sender: FDA-Public Use
  Company Number: US-SA-SAC20240223001074

PATIENT
  Age: 60 Year
  Sex: Female

DRUGS (3)
  1. DUPIXENT [Suspect]
     Active Substance: DUPILUMAB
     Indication: Pruritus
     Dosage: 600MG DAY 1
     Route: 058
     Dates: start: 20240207, end: 20240207
  2. DUPIXENT [Suspect]
     Active Substance: DUPILUMAB
     Indication: Skin disorder
  3. DUPIXENT [Suspect]
     Active Substance: DUPILUMAB
     Indication: Alopecia

REACTIONS (6)
  - Defaecation urgency [Unknown]
  - Dizziness [Not Recovered/Not Resolved]
  - Nausea [Unknown]
  - Diarrhoea [Not Recovered/Not Resolved]
  - Faeces soft [Unknown]
  - Product use in unapproved indication [Unknown]

NARRATIVE: CASE EVENT DATE: 20240201
